FAERS Safety Report 7630696-2 (Version None)
Quarter: 2011Q3

REPORT INFORMATION
  Report Type: 
  Country: None (occurrence: None)
  Receive Date: 20110722
  Receipt Date: 20110628
  Transmission Date: 20111222
  Serious: Yes (Death, Other)
  Sender: FDA-Public Use
  Company Number: GB-ELI_LILLY_AND_COMPANY-GB201106008808

PATIENT
  Age: 67 Year
  Sex: Male

DRUGS (6)
  1. FLUOXETINE [Suspect]
  2. DIHYDROCODEINE BITARTRATE INJ [Concomitant]
  3. TEMAZEPAM [Concomitant]
  4. DIAZEPAM [Concomitant]
  5. METOCLOPRAMIDE [Concomitant]
  6. OXAZEPAM [Concomitant]

REACTIONS (2)
  - FALL [None]
  - INJURY [None]
